FAERS Safety Report 23859220 (Version 2)
Quarter: 2024Q2

REPORT INFORMATION
  Report Type: Spontaneous
  Country: US (occurrence: US)
  Receive Date: 20240515
  Receipt Date: 20240531
  Transmission Date: 20240716
  Serious: Yes (Other)
  Sender: FDA-Public Use
  Company Number: US-BIOGEN-2024BI01264828

PATIENT
  Age: 22 Year
  Sex: Female

DRUGS (3)
  1. ZURZUVAE [Suspect]
     Active Substance: ZURANOLONE
     Indication: Perinatal depression
     Route: 050
     Dates: start: 20240504, end: 20240509
  2. LAMICTAL [Concomitant]
     Active Substance: LAMOTRIGINE
     Indication: Anxiety
     Route: 050
  3. PRISTIQ EXTENDED-RELEASE [Concomitant]
     Active Substance: DESVENLAFAXINE SUCCINATE
     Indication: Anxiety
     Route: 050

REACTIONS (1)
  - Suicidal ideation [Recovered/Resolved]

NARRATIVE: CASE EVENT DATE: 20240508
